FAERS Safety Report 4804881-9 (Version None)
Quarter: 2005Q4

REPORT INFORMATION
  Report Type: 
  Country: None (occurrence: None)
  Receive Date: 20051017
  Receipt Date: 20050930
  Transmission Date: 20060501
  Serious: Yes (Death, Other)
  Sender: FDA-Public Use
  Company Number: 12657

PATIENT
  Age: 29 Year
  Sex: Male

DRUGS (3)
  1. MIDAZOLAM [Suspect]
  2. PHENOBARBITAL TAB [Suspect]
  3. PHENYTOIN [Suspect]

REACTIONS (8)
  - BLOOD CREATINE PHOSPHOKINASE INCREASED [None]
  - CONVULSION [None]
  - DRUG INEFFECTIVE [None]
  - DRUG SCREEN POSITIVE [None]
  - HYPERTHERMIA [None]
  - HYPOTENSION [None]
  - HYPOTHERMIA [None]
  - THERAPY NON-RESPONDER [None]
